FAERS Safety Report 9808774 (Version 1)
Quarter: 2014Q1

REPORT INFORMATION
  Report Type: Spontaneous
  Country: US (occurrence: US)
  Receive Date: 20140110
  Receipt Date: 20140110
  Transmission Date: 20141002
  Serious: Yes (Death, Hospitalization)
  Sender: FDA-Public Use
  Company Number: US-BAYER-2014-005011

PATIENT
  Age: 33 Year
  Sex: Female

DRUGS (7)
  1. METFORMIN [Suspect]
     Dosage: 500 MG, UNK
     Route: 048
  2. PARACETAMOL + DIPHENHYDRAMINE [Suspect]
     Dosage: 375 MG, UNK
     Route: 048
  3. HYDROXYCHLOROQUINE [Suspect]
     Dosage: 200 MG, UNK
     Route: 048
  4. HYDROXYZINE [Suspect]
     Route: 048
  5. COCAINE [Suspect]
     Route: 048
  6. ALPRAZOLAM [Suspect]
     Route: 048
  7. PREGABALIN [Suspect]
     Dosage: 150 MG, UNK
     Route: 048

REACTIONS (1)
  - Toxicity to various agents [Fatal]
